FAERS Safety Report 10902840 (Version 5)
Quarter: 2015Q4

REPORT INFORMATION
  Report Type: Report from Study
  Country: CZ (occurrence: CZ)
  Receive Date: 20150310
  Receipt Date: 20151105
  Transmission Date: 20160304
  Serious: Yes (Death, Hospitalization, Other)
  Sender: FDA-Public Use
  Company Number: CZ-GILEAD-2015-0132952

PATIENT
  Age: 75 Year
  Sex: Male
  Weight: 69 kg

DRUGS (17)
  1. OMNIC TOCAS [Concomitant]
     Dosage: UNK
     Dates: start: 2012
  2. IDELALISIB [Suspect]
     Active Substance: IDELALISIB
     Indication: CHRONIC LYMPHOCYTIC LEUKAEMIA
     Dosage: 150 MG, BID
     Route: 048
     Dates: start: 20141127, end: 20150113
  3. SOLU-MEDROL [Concomitant]
     Active Substance: METHYLPREDNISOLONE SODIUM SUCCINATE
     Dosage: UNK
     Dates: start: 20141127, end: 20141229
  4. PARALEN [Concomitant]
     Active Substance: ACETAMINOPHEN
     Dosage: UNK
     Dates: start: 20141127, end: 20141229
  5. BENDAMUSTINE [Suspect]
     Active Substance: BENDAMUSTINE
     Indication: CHRONIC LYMPHOCYTIC LEUKAEMIA
     Dosage: 159 MG, UNK
     Route: 042
     Dates: start: 20141127, end: 20141127
  6. RITUXIMAB [Suspect]
     Active Substance: RITUXIMAB
     Indication: CHRONIC LYMPHOCYTIC LEUKAEMIA
     Route: 042
     Dates: start: 20141127, end: 20141127
  7. RITUXIMAB [Suspect]
     Active Substance: RITUXIMAB
     Dosage: 880 MG, UNK
     Route: 042
     Dates: start: 20141229, end: 20141229
  8. DITHIADEN [Concomitant]
     Active Substance: BISULEPIN
     Dosage: UNK
     Dates: start: 20141127, end: 20141229
  9. BENDAMUSTINE [Suspect]
     Active Substance: BENDAMUSTINE
     Dosage: 159 MG, UNK
     Route: 042
     Dates: start: 20141128, end: 20141128
  10. COTRIMOXAZOL [Concomitant]
     Active Substance: SULFAMETHOXAZOLE\TRIMETHOPRIM
     Dosage: UNK
     Dates: start: 20141210
  11. ONDANSETRON [Concomitant]
     Active Substance: ONDANSETRON
     Dosage: UNK
     Dates: start: 20141127, end: 20141230
  12. ZOVIRAX [Concomitant]
     Active Substance: ACYCLOVIR
     Dosage: UNK
     Dates: start: 20141127
  13. PRENESSA [Concomitant]
     Active Substance: PERINDOPRIL
     Dosage: UNK
     Dates: start: 2011
  14. LUSOPRESS [Concomitant]
     Active Substance: NITRENDIPINE
     Dosage: UNK
     Dates: start: 2011
  15. BENDAMUSTINE [Suspect]
     Active Substance: BENDAMUSTINE
     Dosage: 159 MG, UNK
     Route: 042
     Dates: start: 20141229, end: 20141229
  16. BENDAMUSTINE [Suspect]
     Active Substance: BENDAMUSTINE
     Dosage: 159 MG, UNK
     Route: 042
     Dates: start: 20141230, end: 20141230
  17. MILURIT [Concomitant]
     Active Substance: ALLOPURINOL
     Dosage: UNK
     Dates: start: 20141126

REACTIONS (20)
  - Rotavirus test positive [None]
  - Staphylococcus test positive [None]
  - Klebsiella test positive [None]
  - Productive cough [None]
  - Escherichia sepsis [None]
  - Duodenal polyp [None]
  - Enterocolitis [Fatal]
  - Pseudomembranous colitis [None]
  - Enterococcal sepsis [None]
  - Cytomegalovirus colitis [None]
  - Tremor [None]
  - Somnolence [None]
  - Respiratory failure [None]
  - Intestinal sepsis [None]
  - Malnutrition [Fatal]
  - Hypertension [None]
  - Deep vein thrombosis [None]
  - Agranulocytosis [None]
  - Cytomegalovirus infection [None]
  - Candida test positive [None]

NARRATIVE: CASE EVENT DATE: 20150118
